FAERS Safety Report 25724458 (Version 1)
Quarter: 2025Q3

REPORT INFORMATION
  Report Type: Spontaneous
  Country: US (occurrence: US)
  Receive Date: 20250826
  Receipt Date: 20250826
  Transmission Date: 20251021
  Serious: Yes (Death)
  Sender: SANOFI AVENTIS
  Company Number: US-COSETTE-CP2025US000815

PATIENT
  Sex: Male

DRUGS (3)
  1. AMBIEN [Suspect]
     Active Substance: ZOLPIDEM TARTRATE
     Indication: Insomnia
     Route: 065
  2. LORAZEPAM [Suspect]
     Active Substance: LORAZEPAM
     Indication: Anxiety
     Route: 065
  3. MORPHINE [Suspect]
     Active Substance: MORPHINE
     Indication: Anxiety
     Route: 065

REACTIONS (3)
  - Cardiovascular disorder [Fatal]
  - Toxicity to various agents [Fatal]
  - Prescription drug used without a prescription [Unknown]
